FAERS Safety Report 16741139 (Version 1)
Quarter: 2019Q3

REPORT INFORMATION
  Report Type: Spontaneous
  Country: CA (occurrence: CA)
  Receive Date: 20190826
  Receipt Date: 20190826
  Transmission Date: 20191005
  Serious: Yes (Death, Hospitalization)
  Sender: FDA-Public Use
  Company Number: CA-PFIZER INC-2019362483

PATIENT
  Age: 64 Year
  Sex: Male

DRUGS (15)
  1. MEDI4736 [Suspect]
     Active Substance: DURVALUMAB
     Indication: PANCREATIC CARCINOMA
     Dosage: 1500 MG, UNK (1 EVERY 4 WEEKS)
     Route: 041
  2. PANCREATIN [Concomitant]
     Active Substance: PANCRELIPASE
     Indication: DIARRHOEA
     Dosage: UNK
     Route: 065
  3. ATIVAN [Concomitant]
     Active Substance: LORAZEPAM
     Indication: INSOMNIA
     Dosage: UNK
     Route: 065
  4. HUMULIN NOS [Concomitant]
     Active Substance: INSULIN HUMAN
     Indication: DIABETES MELLITUS
     Dosage: UNK
     Route: 065
  5. TYLENOL [Concomitant]
     Active Substance: ACETAMINOPHEN
     Indication: PYREXIA
     Dosage: UNK
     Route: 065
  6. GEMCITABINE HYDROCHLORIDE. [Suspect]
     Active Substance: GEMCITABINE HYDROCHLORIDE
     Indication: PANCREATIC CARCINOMA
     Dosage: 3 EVERY 28 DAYS
     Route: 041
  7. ABRAXANE [Suspect]
     Active Substance: PACLITAXEL
     Indication: PANCREATIC CARCINOMA
     Dosage: 125 MG/M2, UNK (1 EVERY 4 WEEKS)
     Route: 041
  8. HYDROMORPHONE [Concomitant]
     Active Substance: HYDROMORPHONE
     Indication: 17-HYDROXYPROGESTERONE INCREASED
     Dosage: UNK
     Route: 065
  9. HUMALOG [Concomitant]
     Active Substance: INSULIN LISPRO
     Indication: DIABETES MELLITUS
     Dosage: UNK
     Route: 065
  10. GLUCAGON. [Concomitant]
     Active Substance: GLUCAGON
     Indication: DIABETES MELLITUS
     Dosage: UNK
     Route: 065
  11. STEMETIL [PROCHLORPERAZINE] [Concomitant]
     Indication: NAUSEA
     Dosage: UNK
     Route: 065
  12. TYLENOL [Concomitant]
     Active Substance: ACETAMINOPHEN
     Dosage: UNK
     Route: 065
  13. TAMIFLU [Concomitant]
     Active Substance: OSELTAMIVIR PHOSPHATE
     Indication: INFECTION
     Dosage: UNK
     Route: 065
  14. ZOPICLONE [Concomitant]
     Active Substance: ZOPICLONE
     Indication: INSOMNIA
     Dosage: UNK
     Route: 065
  15. TICILIMUMAB [Suspect]
     Active Substance: TREMELIMUMAB
     Indication: PANCREATIC CARCINOMA
     Dosage: 75 MG, UNK (1 EVERY 4 WEEKS)
     Route: 041

REACTIONS (3)
  - Hiccups [Fatal]
  - Febrile neutropenia [Fatal]
  - Neoplasm progression [Fatal]
